FAERS Safety Report 12863883 (Version 1)
Quarter: 2016Q4

REPORT INFORMATION
  Report Type: Spontaneous
  Country: FR (occurrence: FR)
  Receive Date: 20161019
  Receipt Date: 20161019
  Transmission Date: 20170207
  Serious: Yes (Congenital Anomaly)
  Sender: FDA-Public Use
  Company Number: FR-ABBVIE-16P-056-1756675-00

PATIENT
  Age: 3 Year
  Sex: Female

DRUGS (1)
  1. DEPAKINE [Suspect]
     Active Substance: VALPROATE SODIUM
     Indication: MATERNAL EXPOSURE TIMING UNSPECIFIED
     Route: 064

REACTIONS (8)
  - Speech disorder [Unknown]
  - Learning disorder [Unknown]
  - Memory impairment [Unknown]
  - Posture abnormal [Unknown]
  - Personal relationship issue [Unknown]
  - Hypermetropia [Unknown]
  - Ligament sprain [Unknown]
  - Foetal exposure during pregnancy [Unknown]

NARRATIVE: CASE EVENT DATE: 2007
